FAERS Safety Report 6004346-5 (Version None)
Quarter: 2008Q4

REPORT INFORMATION
  Report Type: 
  Country: None (occurrence: None)
  Receive Date: 20081216
  Receipt Date: 20081202
  Transmission Date: 20090506
  Serious: Yes (Death, Other)
  Sender: FDA-Public Use
  Company Number: AT-BAYER-AT-2006-033535

PATIENT
  Age: 79 Year
  Sex: Male

DRUGS (8)
  1. CAMPATH [Suspect]
     Indication: CHRONIC LYMPHOCYTIC LEUKAEMIA
     Dosage: UNIT DOSE: 3 MG
     Route: 065
     Dates: start: 20050202, end: 20050202
  2. CAMPATH [Suspect]
     Dosage: UNIT DOSE: 10 MG
     Route: 065
     Dates: start: 20050203, end: 20050203
  3. CAMPATH [Suspect]
     Dosage: UNIT DOSE: 30 MG
     Route: 065
     Dates: start: 20050204, end: 20050204
  4. CAMPATH [Suspect]
     Dosage: UNIT DOSE: 30 MG
     Route: 065
     Dates: start: 20050205, end: 20050228
  5. VALACYCLOVIR HCL [Concomitant]
     Indication: INFECTION PROPHYLAXIS
     Route: 065
  6. SULFAMETHOXAZOLE AND TRIMETHOPRIM [Concomitant]
     Indication: INFECTION PROPHYLAXIS
     Route: 065
  7. BETA BLOCKER [Concomitant]
     Indication: HYPERTENSION
     Route: 065
  8. METFORMIN HCL [Concomitant]
     Indication: DIABETES MELLITUS
     Route: 065

REACTIONS (3)
  - HYPOTENSION [None]
  - KERATOACANTHOMA [None]
  - PULMONARY EMBOLISM [None]
